FAERS Safety Report 17310188 (Version 1)
Quarter: 2020Q1

REPORT INFORMATION
  Report Type: Spontaneous
  Country: NL (occurrence: NL)
  Receive Date: 20200123
  Receipt Date: 20200123
  Transmission Date: 20200409
  Serious: Yes (Hospitalization, Other)
  Sender: FDA-Public Use
  Company Number: NL-PFIZER INC-2020027145

PATIENT
  Age: 65 Year
  Sex: Male
  Weight: 104 kg

DRUGS (6)
  1. CARBOPLATIN. [Suspect]
     Active Substance: CARBOPLATIN
     Indication: NON-SMALL CELL LUNG CANCER
     Dosage: 545 MG, EVERY 3 WEEKS (545 MG, Q3W)
     Route: 042
     Dates: start: 20190304
  2. CANAKINUMAB. [Suspect]
     Active Substance: CANAKINUMAB
     Indication: NON-SMALL CELL LUNG CANCER
     Dosage: 200 MG, EVERY 3 WEEKS (200 MG, Q3W)
     Route: 058
     Dates: start: 20190304, end: 20190805
  3. PEMETREXED. [Suspect]
     Active Substance: PEMETREXED
     Indication: NON-SMALL CELL LUNG CANCER
     Dosage: 117 MG, EVERY 3 WEEKS (117 MG, Q3W)
     Route: 042
     Dates: start: 20190304, end: 20190805
  4. PEMBROLIZUMAB. [Suspect]
     Active Substance: PEMBROLIZUMAB
     Dosage: UNK
     Route: 042
     Dates: start: 20191023
  5. CANAKINUMAB. [Suspect]
     Active Substance: CANAKINUMAB
     Dosage: UNK
     Route: 058
     Dates: start: 20191023
  6. PEMBROLIZUMAB. [Suspect]
     Active Substance: PEMBROLIZUMAB
     Indication: NON-SMALL CELL LUNG CANCER
     Dosage: 200 MG, EVERY 3 WEEKS ( 200 MG, Q3W)
     Route: 042
     Dates: start: 20190304, end: 20190805

REACTIONS (4)
  - Haemoglobin decreased [Unknown]
  - Creatinine renal clearance decreased [Unknown]
  - Blood creatinine increased [Unknown]
  - Fatigue [Recovered/Resolved with Sequelae]

NARRATIVE: CASE EVENT DATE: 20190911
